FAERS Safety Report 5313104-6 (Version None)
Quarter: 2007Q2

REPORT INFORMATION
  Report Type: 
  Country: None (occurrence: None)
  Receive Date: 20070430
  Receipt Date: 20070418
  Transmission Date: 20071010
  Serious: Yes (Other)
  Sender: FDA-Public Use
  Company Number: CA-PFIZER INC-2007032192

PATIENT
  Sex: Female

DRUGS (1)
  1. SUTENT [Suspect]
     Route: 048

REACTIONS (12)
  - ALOPECIA [None]
  - ANAL DISCOMFORT [None]
  - DRY SKIN [None]
  - FATIGUE [None]
  - LACRIMATION INCREASED [None]
  - ORAL PAIN [None]
  - PLATELET COUNT DECREASED [None]
  - PRURITUS [None]
  - RHINORRHOEA [None]
  - SKIN IRRITATION [None]
  - THYROID DISORDER [None]
  - VULVOVAGINAL DISCOMFORT [None]
